FAERS Safety Report 20085587 (Version 1)
Quarter: 2021Q4

REPORT INFORMATION
  Report Type: Spontaneous
  Country: SK (occurrence: SK)
  Receive Date: 20211118
  Receipt Date: 20211118
  Transmission Date: 20220303
  Serious: Yes (Other)
  Sender: FDA-Public Use
  Company Number: SK-UCBSA-2021041033

PATIENT
  Age: 36 Year
  Sex: Female

DRUGS (5)
  1. LEVETIRACETAM [Suspect]
     Active Substance: LEVETIRACETAM
     Indication: Generalised tonic-clonic seizure
     Dosage: UNK
  2. LACOSAMIDE [Suspect]
     Active Substance: LACOSAMIDE
     Indication: Generalised tonic-clonic seizure
     Dosage: UNK
  3. IMMUNE GLOBULIN NOS [Concomitant]
     Active Substance: IMMUNE GLOBULIN NOS
     Indication: Limbic encephalitis
     Dosage: 0.4G /KG /DAY (50G /DAY A TOTAL OF 5 TIMES)
     Route: 042
  4. METHYLPREDNISOLONE [Concomitant]
     Active Substance: METHYLPREDNISOLONE
     Indication: Limbic encephalitis
     Dosage: TOTAL DOSE OF 5 G
  5. VALPROATE [Concomitant]
     Active Substance: VALPROIC ACID
     Indication: Generalised tonic-clonic seizure
     Dosage: UNK

REACTIONS (4)
  - Epilepsy [Recovered/Resolved]
  - Hallucination, visual [Unknown]
  - Hallucination [Recovered/Resolved]
  - Deja vu [Unknown]
